FAERS Safety Report 7704139-4 (Version None)
Quarter: 2011Q3

REPORT INFORMATION
  Report Type: 
  Country: None (occurrence: None)
  Receive Date: 20110823
  Receipt Date: 20110419
  Transmission Date: 20111222
  Serious: Yes (Hospitalization)
  Sender: FDA-Public Use
  Company Number: US-BAYER-201029119NA

PATIENT
  Age: 76 Year
  Sex: Female
  Weight: 52.1 kg

DRUGS (14)
  1. ADVAIR DISKUS 100/50 [Concomitant]
     Dosage: 250/50 TOTAL DAILY DOSE
     Route: 048
     Dates: start: 20100317
  2. ALBUTEROL SULFATE AUTOHALER [Concomitant]
     Indication: CHRONIC OBSTRUCTIVE PULMONARY DISEASE
     Dosage: DAILY DOSE 90 ?G
     Route: 048
     Dates: start: 20100317
  3. SYNTHROID [Concomitant]
     Indication: HYPOTHYROIDISM
     Dosage: DAILY DOSE 50 ?G
     Route: 048
     Dates: start: 20100519
  4. MEGACE [Concomitant]
     Dosage: 1
  5. ADVAIR DISKUS 100/50 [Concomitant]
     Indication: CHRONIC OBSTRUCTIVE PULMONARY DISEASE
     Dosage: 250/50
     Route: 055
     Dates: start: 20100317
  6. ALBUTEROL SULFATE AUTOHALER [Concomitant]
     Route: 055
  7. KLONOPIN [Concomitant]
     Indication: ANXIETY
     Dosage: DAILY DOSE .5 MG
     Route: 048
     Dates: start: 20100317
  8. AGGRENOX [Concomitant]
     Indication: ANTIPLATELET THERAPY
     Dosage: DIPYRIDAMOLE 200MG TOTAL DAILY DOSE
     Route: 048
     Dates: start: 20100317
  9. AGGRENOX [Concomitant]
     Dosage: AGGRENOX 25-200 MG, 1 CAP EVERY 12 HOURS
     Route: 048
  10. SORAFENIB [Suspect]
     Indication: HEPATIC NEOPLASM MALIGNANT
     Route: 048
     Dates: start: 20100716, end: 20100722
  11. MULTI-VITAMIN [Concomitant]
     Indication: VITAMIN SUPPLEMENTATION
     Dosage: 1 TAB DAILY
     Route: 048
     Dates: start: 20100325
  12. PREVIDENT [Concomitant]
     Indication: DENTAL DISORDER PROPHYLAXIS
     Dosage: 5000 PLUS; 1 TUBE (TOTAL DAILY DOSE)
     Route: 048
     Dates: start: 20100716
  13. KLONOPIN [Concomitant]
  14. AGGRENOX [Concomitant]
     Dosage: ASPIRIN 25MG TOTAL DAILY DOSE
     Route: 048
     Dates: start: 20100317

REACTIONS (1)
  - HEPATIC ENCEPHALOPATHY [None]
